FAERS Safety Report 6714081-3 (Version None)
Quarter: 2010Q2

REPORT INFORMATION
  Report Type: 
  Country: None (occurrence: None)
  Receive Date: 20100506
  Receipt Date: 20100428
  Transmission Date: 20101027
  Serious: Yes (Hospitalization)
  Sender: FDA-Public Use
  Company Number: TR-ABBOTT-10P-161-0638976-00

PATIENT
  Age: 70 Year
  Sex: Female

DRUGS (1)
  1. TARKA [Suspect]
     Indication: HYPERTENSION
     Dosage: 4/20MG
     Route: 048
     Dates: start: 20090101, end: 20100326

REACTIONS (3)
  - ARRHYTHMIA [None]
  - PALPITATIONS [None]
  - PULMONARY OEDEMA [None]
